FAERS Safety Report 6006305-5 (Version None)
Quarter: 2008Q4

REPORT INFORMATION
  Report Type: 
  Country: None (occurrence: None)
  Receive Date: 20081216
  Receipt Date: 20081216
  Transmission Date: 20090506
  Serious: Yes (Other)
  Sender: FDA-Public Use
  Company Number: None

PATIENT
  Age: 40 Year
  Sex: Female

DRUGS (1)
  1. AK-FLUOR 10% [Suspect]
     Dosage: ABOUT 1 DROP IV
     Route: 042
     Dates: start: 20081215, end: 20081215

REACTIONS (2)
  - BLOOD GLUCOSE DECREASED [None]
  - SYNCOPE [None]
